FAERS Safety Report 12909849 (Version 1)
Quarter: 2016Q4

REPORT INFORMATION
  Report Type: Spontaneous
  Country: BR (occurrence: BR)
  Receive Date: 20161104
  Receipt Date: 20161104
  Transmission Date: 20170207
  Serious: Yes (Hospitalization)
  Sender: FDA-Public Use
  Company Number: BR-TORRENT-00003647

PATIENT
  Age: 57 Year
  Sex: Female
  Weight: 76 kg

DRUGS (11)
  1. RISPERIDONE. [Concomitant]
     Active Substance: RISPERIDONE
     Indication: ANXIETY
     Dosage: RISPERIDONE 2 MG,  HALF OF A TABLET DAILY/ORAL.
     Route: 048
     Dates: start: 20161014
  2. VENLIFT OD [Suspect]
     Active Substance: VENLAFAXINE HYDROCHLORIDE
     Indication: DEPRESSION
     Dosage: VENLIFT OD 75 MG, TWICE DAILY/ORAL
     Route: 048
     Dates: start: 2011
  3. GLIBENCLAMIDE [Concomitant]
     Active Substance: GLYBURIDE
     Indication: DIABETES MELLITUS
     Dosage: GLIBENCLAMIDE 5 MG, ONCE DAILY/ORAL.
     Route: 048
     Dates: start: 2014
  4. METFORMIN [Concomitant]
     Active Substance: METFORMIN HYDROCHLORIDE
     Indication: DIABETES MELLITUS
     Dosage: METFORMIN XR 500 MG, 4 TIMES DAILY/ORAL.
     Route: 048
     Dates: start: 2014
  5. LITHIUM CARBONATE. [Concomitant]
     Active Substance: LITHIUM CARBONATE
     Indication: DEPRESSION
     Dosage: LITHIUM CARBONATE 300 MG, 3 TIMES DAILY/ORAL.
     Dates: start: 20161014
  6. RIVOTRIL [Concomitant]
     Active Substance: CLONAZEPAM
     Indication: INSOMNIA
     Dosage: RIVOTRIL 2 MG, TWICE DAILY/ORAL
     Dates: start: 2008
  7. AAS [Concomitant]
     Active Substance: ASPIRIN
     Indication: HYPERTENSION
     Dosage: AAS (ACETYLSALICYLIC ACID) 10 MG, ONCE DAILY/ORAL.
     Route: 048
     Dates: start: 1989
  8. SIMVASTATIN. [Concomitant]
     Active Substance: SIMVASTATIN
     Indication: BLOOD CHOLESTEROL INCREASED
     Dosage: SIMVASTATIN 20 MG, ONCE DAILY/ORAL.
     Route: 048
     Dates: start: 2014
  9. CAPTOPRIL. [Concomitant]
     Active Substance: CAPTOPRIL
     Indication: HYPERTENSION
     Dosage: CAPTOPRIL 25 MG, 3 TIMES DAILY/ORAL.
     Route: 048
     Dates: start: 1986
  10. PROPRANOLOL [Concomitant]
     Active Substance: PROPRANOLOL\PROPRANOLOL HYDROCHLORIDE
     Indication: HYPERTENSION
     Dosage: PROPRANOLOL 40 MG, 3 TIMES DAILY/ORAL.
     Route: 048
     Dates: start: 1989
  11. HYDROCHLOROTHIAZIDE. [Concomitant]
     Active Substance: HYDROCHLOROTHIAZIDE
     Indication: HYPERTENSION
     Dosage: HYDROCHLOROTHIAZIDE 25 MG, ONCE DAILY/ ORAL.
     Route: 048
     Dates: start: 1989

REACTIONS (8)
  - Tremor [Not Recovered/Not Resolved]
  - Blood cholesterol increased [Not Recovered/Not Resolved]
  - Hypoglycaemia [Unknown]
  - Presyncope [Not Recovered/Not Resolved]
  - Drug ineffective [Not Recovered/Not Resolved]
  - Diabetes mellitus [Not Recovered/Not Resolved]
  - Headache [Not Recovered/Not Resolved]
  - Urinary tract infection [Unknown]

NARRATIVE: CASE EVENT DATE: 2011
